FAERS Safety Report 8414591-7 (Version None)
Quarter: 2012Q2

REPORT INFORMATION
  Report Type: 
  Country: None (occurrence: None)
  Receive Date: 20120605
  Receipt Date: 20120530
  Transmission Date: 20120825
  Serious: Yes (Other)
  Sender: FDA-Public Use
  Company Number: US-PFIZER INC-2011290867

PATIENT
  Sex: Male

DRUGS (10)
  1. PROTONIX [Concomitant]
     Dosage: UNK
  2. NEURONTIN [Suspect]
     Indication: NEURALGIA
     Dosage: 300 MG, 3X/DAY
     Dates: start: 20110801
  3. NORVASC [Suspect]
     Dosage: UNK
  4. FLUOXETINE [Concomitant]
     Dosage: UNK
  5. ATENOLOL [Concomitant]
     Dosage: UNK
  6. HYDROCHLOROTHIAZIDE [Concomitant]
     Dosage: UNK
  7. AZULFIDINE [Suspect]
     Dosage: UNK
  8. LISINOPRIL [Concomitant]
     Dosage: UNK
  9. XALATAN [Suspect]
     Dosage: UNK
  10. LEVOXYL [Concomitant]
     Dosage: UNK

REACTIONS (1)
  - DRUG WITHDRAWAL SYNDROME [None]
